FAERS Safety Report 9735859 (Version 2)
Quarter: 2015Q3

REPORT INFORMATION
  Report Type: Spontaneous
  Country: US (occurrence: US)
  Receive Date: 20131206
  Receipt Date: 20150804
  Transmission Date: 20151125
  Serious: No
  Sender: FDA-Public Use
  Company Number: US-GILEAD-2009-0024208

PATIENT
  Age: 71 Year
  Sex: Female
  Weight: 101.6 kg

DRUGS (14)
  1. LETAIRIS [Suspect]
     Active Substance: AMBRISENTAN
     Indication: PULMONARY ARTERIAL HYPERTENSION
     Route: 048
     Dates: start: 20090223
  2. REVATIO [Concomitant]
     Active Substance: SILDENAFIL CITRATE
  3. GLIMEPIRIDE. [Concomitant]
     Active Substance: GLIMEPIRIDE
  4. PREMARIN [Concomitant]
     Active Substance: ESTROGENS, CONJUGATED
  5. CALCIUM [Concomitant]
     Active Substance: CALCIUM
  6. METOPROLOL [Concomitant]
     Active Substance: METOPROLOL
  7. NAPROSYN [Concomitant]
     Active Substance: NAPROXEN
  8. VITAMIN B12 [Concomitant]
     Active Substance: CYANOCOBALAMIN
  9. PREDNISONE. [Concomitant]
     Active Substance: PREDNISONE
  10. LASIX [Concomitant]
     Active Substance: FUROSEMIDE
  11. PRAVASTATIN [Concomitant]
     Active Substance: PRAVASTATIN\PRAVASTATIN SODIUM
  12. K-DUR [Concomitant]
     Active Substance: POTASSIUM CHLORIDE
  13. ASPIRIN. [Concomitant]
     Active Substance: ASPIRIN
  14. MSM [Concomitant]
     Active Substance: DIMETHYL SULFONE

REACTIONS (2)
  - Muscular weakness [Not Recovered/Not Resolved]
  - Peripheral swelling [Not Recovered/Not Resolved]

NARRATIVE: CASE EVENT DATE: 200902
